FAERS Safety Report 13315626 (Version 2)
Quarter: 2017Q3

REPORT INFORMATION
  Report Type: Report from Study
  Country: None (occurrence: US)
  Receive Date: 20170310
  Receipt Date: 20170905
  Transmission Date: 20171127
  Serious: Yes (Congenital Anomaly, Other)
  Sender: FDA-Public Use
  Company Number: US-ABBVIE-17K-163-1896978-00

PATIENT
  Sex: Female
  Weight: 2.27 kg

DRUGS (2)
  1. HUMIRA [Suspect]
     Active Substance: ADALIMUMAB
     Indication: MATERNAL EXPOSURE TIMING UNSPECIFIED
     Route: 064
  2. HUMIRA [Suspect]
     Active Substance: ADALIMUMAB
     Route: 063

REACTIONS (7)
  - Foetal heart rate decreased [Unknown]
  - Exposure during breast feeding [Unknown]
  - Haematochezia [Not Recovered/Not Resolved]
  - Low birth weight baby [Unknown]
  - Pulmonary malformation [Recovered/Resolved]
  - Foetal exposure during pregnancy [Unknown]
  - Milk allergy [Not Recovered/Not Resolved]

NARRATIVE: CASE EVENT DATE: 2017
